FAERS Safety Report 25538992 (Version 1)
Quarter: 2025Q3

REPORT INFORMATION
  Report Type: Spontaneous
  Country: AU (occurrence: AU)
  Receive Date: 20250710
  Receipt Date: 20250710
  Transmission Date: 20251021
  Serious: Yes (Other)
  Sender: DAIICHI
  Company Number: AU-AstraZeneca-CH-00904065A

PATIENT
  Sex: Female

DRUGS (1)
  1. TRASTUZUMAB DERUXTECAN [Suspect]
     Active Substance: TRASTUZUMAB DERUXTECAN
     Indication: Breast cancer
     Dosage: 4.4 MILLILITRE PER KILOGRAM, Q3W
     Route: 041

REACTIONS (4)
  - Fatigue [Unknown]
  - Nausea [Unknown]
  - Metastases to meninges [Unknown]
  - Therapeutic response unexpected [Unknown]
